FAERS Safety Report 7657078-1 (Version None)
Quarter: 2011Q3

REPORT INFORMATION
  Report Type: 
  Country: None (occurrence: None)
  Receive Date: 20110804
  Receipt Date: 20100805
  Transmission Date: 20111222
  Serious: No
  Sender: FDA-Public Use
  Company Number: US-GLAXOSMITHKLINE-A0874205A

PATIENT
  Age: 74 Year
  Sex: Female

DRUGS (8)
  1. UNKNOWN MEDICATION [Concomitant]
  2. POTASSIUM [Concomitant]
  3. ADVAIR DISKUS 100/50 [Suspect]
     Indication: ASTHMA
     Dosage: 2PUFF SINGLE DOSE
     Route: 055
     Dates: start: 20100804, end: 20100804
  4. PREMARIN [Concomitant]
  5. AMITIZA [Concomitant]
  6. DILTIA XT [Concomitant]
  7. LISINOPRIL [Concomitant]
  8. PREVACID [Concomitant]

REACTIONS (1)
  - HEADACHE [None]
